FAERS Safety Report 16483073 (Version 1)
Quarter: 2019Q2

REPORT INFORMATION
  Report Type: Spontaneous
  Country: US (occurrence: US)
  Receive Date: 20190627
  Receipt Date: 20190627
  Transmission Date: 20190711
  Serious: Yes (Hospitalization)
  Sender: FDA-Public Use
  Company Number: US-STRIDES ARCOLAB LIMITED-2019SP005497

PATIENT
  Age: 8 Year
  Sex: Female

DRUGS (1)
  1. ERGOCALCIFEROL. [Suspect]
     Active Substance: ERGOCALCIFEROL
     Indication: VITAMIN D DEFICIENCY
     Dosage: 5000 UNITS DAILY
     Route: 065

REACTIONS (5)
  - Cardiac failure [Unknown]
  - Fatigue [Unknown]
  - Toxicity to various agents [Unknown]
  - Electrolyte imbalance [Unknown]
  - Incorrect dose administered [Unknown]
